FAERS Safety Report 10257297 (Version 1)
Quarter: 2014Q2

REPORT INFORMATION
  Report Type: Spontaneous
  Country: US (occurrence: None)
  Receive Date: 20140620
  Receipt Date: 20140620
  Transmission Date: 20141212
  Serious: Yes (Other)
  Sender: FDA-Public Use
  Company Number: 2014060046

PATIENT
  Age: 59 Year
  Sex: Male
  Weight: 117.94 kg

DRUGS (12)
  1. DYMISTA [Suspect]
     Indication: MULTIPLE ALLERGIES
     Dosage: 1 DOSAGE FORMS (2 DOSAGE FORMS, 1 IN 2 D)
     Route: 055
     Dates: start: 20140525, end: 20140528
  2. DYMISTA [Suspect]
     Indication: NASAL CONGESTION
     Dosage: 1 DOSAGE FORMS (2 DOSAGE FORMS, 1 IN 2 D)
     Route: 055
     Dates: start: 20140525, end: 20140528
  3. HYDROCHLOROTHIAZIDE/LISINOPRIL (HYDROCHLOROTHIAIZE/LISINOPRIL) [Concomitant]
  4. AMLODIPINE (AMLODIPINE) [Concomitant]
  5. CRESTOR (ROSUVASTATIN CALCIUM) [Concomitant]
  6. ASPIRIN (ACETYLSALICYLIC ACID) [Concomitant]
  7. MAGNESIUM (MAGNESIUM) [Concomitant]
  8. POTASSIUM CL [Concomitant]
  9. CO Q10 (UBIQUINONE) [Concomitant]
  10. VITAMIN D (ERGOCALCIFEROL) [Concomitant]
  11. FISH OIL (FISH OIL) [Concomitant]
  12. CRANBERRY (VACCINIUM MACROCARPON) [Concomitant]

REACTIONS (5)
  - Aphasia [None]
  - Pharyngeal erythema [None]
  - Upper respiratory tract infection [None]
  - Tinnitus [None]
  - Throat irritation [None]
